FAERS Safety Report 9838094 (Version 2)
Quarter: 2014Q1

REPORT INFORMATION
  Report Type: Spontaneous
  Country: FR (occurrence: FR)
  Receive Date: 20140123
  Receipt Date: 20140123
  Transmission Date: 20141002
  Serious: Yes (Other)
  Sender: FDA-Public Use
  Company Number: FR-ABBVIE-13P-056-1161506-00

PATIENT
  Age: 34 Year
  Sex: Female

DRUGS (4)
  1. HUMIRA [Suspect]
     Indication: PSORIATIC ARTHROPATHY
     Route: 058
     Dates: start: 20130930
  2. DICLOFENAC (VOLTARENE LP) [Concomitant]
     Indication: PSORIATIC ARTHROPATHY
  3. ESOMEPRAZOLE (INXIUM) [Concomitant]
     Indication: PROPHYLAXIS
     Route: 048
  4. PARACETAMOL [Concomitant]
     Indication: PAIN

REACTIONS (5)
  - Laryngeal oedema [Recovered/Resolved]
  - Injection site urticaria [Recovered/Resolved]
  - Hypersensitivity [Unknown]
  - Localised oedema [Recovered/Resolved]
  - Skin reaction [Recovered/Resolved]
